FAERS Safety Report 6910804-9 (Version None)
Quarter: 2010Q3

REPORT INFORMATION
  Report Type: 
  Country: None (occurrence: None)
  Receive Date: 20100806
  Receipt Date: 20100727
  Transmission Date: 20110219
  Serious: Yes (Hospitalization)
  Sender: FDA-Public Use
  Company Number: CA-JNJFOC-20100605831

PATIENT
  Age: 27 Year
  Sex: Female
  Weight: 77.3 kg

DRUGS (4)
  1. REMICADE [Suspect]
     Indication: CROHN'S DISEASE
     Route: 042
  2. CELEBREX [Concomitant]
     Indication: ARTHRALGIA
     Dosage: 200 MG PRN
     Route: 048
  3. TYLENOL-500 [Concomitant]
     Indication: HEADACHE
     Dosage: ACETAMINOPHEN 500 MG PRN
     Route: 048
  4. SERTRALINE HYDROCHLORIDE [Concomitant]
     Indication: DEPRESSION
     Route: 048

REACTIONS (1)
  - INTESTINAL RESECTION [None]
